FAERS Safety Report 24537617 (Version 4)
Quarter: 2025Q1

REPORT INFORMATION
  Report Type: Spontaneous
  Country: US (occurrence: US)
  Receive Date: 20241023
  Receipt Date: 20250122
  Transmission Date: 20250409
  Serious: No
  Sender: ABBVIE
  Company Number: US-ABBVIE-5973254

PATIENT
  Age: 77 Year
  Sex: Female

DRUGS (3)
  1. RESTASIS [Suspect]
     Active Substance: CYCLOSPORINE
     Indication: Dry eye
     Route: 047
  2. RESTASIS [Suspect]
     Active Substance: CYCLOSPORINE
     Route: 047
  3. RESTASIS [Suspect]
     Active Substance: CYCLOSPORINE
     Route: 047

REACTIONS (2)
  - Liquid product physical issue [Not Recovered/Not Resolved]
  - Drug ineffective [Unknown]
